APPROVED DRUG PRODUCT: KETOTIFEN FUMARATE
Active Ingredient: KETOTIFEN FUMARATE
Strength: EQ 0.025% BASE
Dosage Form/Route: SOLUTION/DROPS;OPHTHALMIC
Application: A077958 | Product #001
Applicant: SENTISS AG
Approved: Jul 26, 2007 | RLD: No | RS: No | Type: OTC